FAERS Safety Report 25706549 (Version 2)
Quarter: 2025Q4

REPORT INFORMATION
  Report Type: Spontaneous
  Country: US (occurrence: US)
  Receive Date: 20250820
  Receipt Date: 20251120
  Transmission Date: 20260118
  Serious: No
  Sender: CATALYST PHARMA
  Company Number: US-CATALYST PHARMACEUTICALS-US-CATA-25-01023

PATIENT
  Sex: Male
  Weight: 44.444 kg

DRUGS (16)
  1. AGAMREE [Suspect]
     Active Substance: VAMOROLONE
     Indication: Duchenne muscular dystrophy
     Dosage: 6.5 ML DAILY
     Route: 048
     Dates: start: 20250624
  2. CALCIUM [Concomitant]
     Active Substance: CALCIUM
     Indication: Hypovitaminosis
     Dosage: 500 MG DAILY
     Route: 065
  3. COENZYME Q10 [Concomitant]
     Active Substance: DIETARY SUPPLEMENT\UBIDECARENONE
     Indication: Cardiovascular event prophylaxis
     Dosage: 100 MG DAILY
     Route: 048
  4. COENZYME Q10 [Concomitant]
     Active Substance: DIETARY SUPPLEMENT\UBIDECARENONE
     Dosage: 200 MG DAILY
     Route: 048
  5. MAGNESIUM OXIDE [Concomitant]
     Active Substance: MAGNESIUM OXIDE
     Indication: Hypovitaminosis
     Dosage: 400 MG DAILY
     Route: 065
  6. MAGNESIUM OXIDE [Concomitant]
     Active Substance: MAGNESIUM OXIDE
     Indication: Bone disorder
     Dosage: 70 MG DAILY
     Route: 065
  7. MAGNESIUM OXIDE [Concomitant]
     Active Substance: MAGNESIUM OXIDE
     Indication: Prophylaxis
  8. MAGNESIUM OXIDE [Concomitant]
     Active Substance: MAGNESIUM OXIDE
     Indication: Muscle spasms
  9. VITAMIN D3 [Concomitant]
     Active Substance: CHOLECALCIFEROL
     Indication: Hypovitaminosis
     Dosage: 1000 UNITS DAILY
     Route: 065
  10. CALCIUM 500 PLUS D3 [Concomitant]
     Indication: Bone disorder
     Dosage: 1000-50MG/MCG DAILY
     Route: 065
  11. CALCIUM 500 PLUS D3 [Concomitant]
     Indication: Prophylaxis
  12. MIRALAX [Concomitant]
     Active Substance: POLYETHYLENE GLYCOL 3350
     Indication: Constipation
     Dosage: 17G PER SCOOP ONE CAPFUL DAILY
     Route: 048
  13. CHILDRENS TYLENOL [Concomitant]
     Active Substance: ACETAMINOPHEN
     Indication: Pyrexia
     Dosage: AS NEEDED
     Route: 048
  14. HYDROCORTISONE [Concomitant]
     Active Substance: HYDROCORTISONE
     Indication: Rash
     Dosage: AS NEEDED
     Route: 061
  15. DIMETAPP CODEINE ALLERGY [Concomitant]
     Indication: Rhinorrhoea
     Dosage: 1-2.5MG PER 5ML AS NEEDED
     Route: 048
  16. DIMETAPP CODEINE ALLERGY [Concomitant]
     Indication: Nasopharyngitis

REACTIONS (3)
  - Eczema [Not Recovered/Not Resolved]
  - Abdominal pain upper [Recovering/Resolving]
  - Diarrhoea [Not Recovered/Not Resolved]

NARRATIVE: CASE EVENT DATE: 20250101
